FAERS Safety Report 20967188 (Version 1)
Quarter: 2022Q2

REPORT INFORMATION
  Report Type: Spontaneous
  Country: US (occurrence: None)
  Receive Date: 20220615
  Receipt Date: 20220615
  Transmission Date: 20220721
  Serious: Yes (Disabling)
  Sender: FDA-Public Use
  Company Number: None

PATIENT
  Age: 60 Year
  Sex: Female
  Weight: 38.56 kg

DRUGS (4)
  1. TROPICAMIDE [Suspect]
     Active Substance: TROPICAMIDE
     Indication: Pupil dilation procedure
     Dosage: FREQUENCY : ONCE;?OTHER ROUTE : INTO THE EYE;?
     Route: 050
     Dates: start: 20220427, end: 20220427
  2. TAURINE [Concomitant]
     Active Substance: TAURINE
  3. VITAMINS [Concomitant]
     Active Substance: VITAMINS
  4. FLAXSEED [Concomitant]
     Active Substance: FLAX SEED

REACTIONS (8)
  - Taste disorder [None]
  - Nausea [None]
  - Headache [None]
  - Visual impairment [None]
  - Headache [None]
  - Insomnia [None]
  - Dysarthria [None]
  - Tinnitus [None]

NARRATIVE: CASE EVENT DATE: 20220427
